FAERS Safety Report 4938676-2 (Version None)
Quarter: 2006Q1

REPORT INFORMATION
  Report Type: 
  Country: None (occurrence: None)
  Receive Date: 20060309
  Receipt Date: 20051222
  Transmission Date: 20060701
  Serious: Yes (Other)
  Sender: FDA-Public Use
  Company Number: PHNR2005AU01741

PATIENT
  Sex: Female

DRUGS (3)
  1. ACETAMINOPHEN [Concomitant]
  2. ACETAMINOPHEN W/ CODEINE [Concomitant]
  3. LESCOL [Suspect]
     Dates: end: 20051215

REACTIONS (2)
  - HEPATOMEGALY [None]
  - MALAISE [None]
